FAERS Safety Report 8908801 (Version 1)
Quarter: 2012Q4

REPORT INFORMATION
  Report Type: 
  Country: US (occurrence: US)
  Receive Date: 20121113
  Receipt Date: 20121113
  Transmission Date: 20130627
  Serious: No
  Sender: FDA-Public Use
  Company Number: US-AMGEN-USASP2012011880

PATIENT
  Age: 73 Year
  Sex: Female

DRUGS (8)
  1. ENBREL [Suspect]
     Indication: PRODUCT USED FOR UNKNOWN INDICATION
     Dosage: 50 mg, qwk
     Route: 058
  2. LIPITOR [Concomitant]
     Dosage: 20 mg, UNK
  3. ACCUPRIL [Concomitant]
     Dosage: 40 mg, UNK
  4. MULTIVITAMIN                       /02160401/ [Concomitant]
  5. CALCIUM + VITAMIN D                /01483701/ [Concomitant]
  6. FIBER [Concomitant]
  7. CRANBERRY                          /01512301/ [Concomitant]
     Dosage: 1000 mg, UNK
  8. LEVOXYL [Concomitant]
     Dosage: 175 mug, UNK

REACTIONS (1)
  - Urinary tract infection [Unknown]
